FAERS Safety Report 13841011 (Version 1)
Quarter: 2017Q3

REPORT INFORMATION
  Report Type: Spontaneous
  Country: US (occurrence: US)
  Receive Date: 20170807
  Receipt Date: 20170807
  Transmission Date: 20171127
  Serious: No
  Sender: FDA-Public Use
  Company Number: GXBR2016US003613

PATIENT
  Sex: Female
  Weight: 65.77 kg

DRUGS (1)
  1. OXISTAT [Suspect]
     Active Substance: OXICONAZOLE NITRATE
     Indication: TINEA PEDIS
     Dosage: 2 DRP, ONCE/SINGLE
     Route: 047

REACTIONS (4)
  - Vision blurred [Recovering/Resolving]
  - Eye irritation [Recovering/Resolving]
  - Visual impairment [Recovering/Resolving]
  - Accidental exposure to product [Unknown]
